FAERS Safety Report 4822382-9 (Version None)
Quarter: 2005Q4

REPORT INFORMATION
  Report Type: 
  Country: None (occurrence: None)
  Receive Date: 20051104
  Receipt Date: 20051104
  Transmission Date: 20060501
  Serious: Yes (Other)
  Sender: FDA-Public Use
  Company Number: None

PATIENT
  Age: 60 Year
  Sex: Male
  Weight: 147.419 kg

DRUGS (1)
  1. RISPERIDONE [Suspect]
     Indication: SCHIZOPHRENIA
     Dosage: 3 MG   DAILY  PO
     Route: 048
     Dates: start: 20050316, end: 20051103

REACTIONS (1)
  - DIABETES MELLITUS NON-INSULIN-DEPENDENT [None]
